FAERS Safety Report 4283141-1 (Version None)
Quarter: 2004Q1

REPORT INFORMATION
  Report Type: 
  Country: None (occurrence: None)
  Receive Date: 20040121
  Receipt Date: 20031104
  Transmission Date: 20041129
  Serious: Yes (Hospitalization)
  Sender: FDA-Public Use
  Company Number: 600986

PATIENT
  Age: 8 Year
  Sex: Male

DRUGS (1)
  1. HEMOFIL M [Suspect]
     Indication: FACTOR VIII DEFICIENCY
     Dosage: 2 ML; INTRAVENOUS
     Route: 042
     Dates: start: 19960323, end: 19960323

REACTIONS (9)
  - ABDOMINAL PAIN [None]
  - CHEST PAIN [None]
  - CYANOSIS [None]
  - FACE OEDEMA [None]
  - HYPOTENSION [None]
  - PETECHIAE [None]
  - RENAL FAILURE ACUTE [None]
  - SYNCOPE [None]
  - TONSILLITIS [None]
